FAERS Safety Report 8347809-X (Version None)
Quarter: 2012Q2

REPORT INFORMATION
  Report Type: 
  Country: None (occurrence: None)
  Receive Date: 20120509
  Receipt Date: 20120501
  Transmission Date: 20120825
  Serious: Yes (Hospitalization, Congenital Anomaly)
  Sender: FDA-Public Use
  Company Number: US-GLAXOSMITHKLINE-A0976800A

PATIENT
  Sex: Male
  Weight: 2.1 kg

DRUGS (2)
  1. WELLBUTRIN XL [Concomitant]
     Dosage: 150MG PER DAY
     Route: 064
  2. PAXIL [Suspect]
     Indication: DEPRESSION
     Dosage: 20MG PER DAY
     Route: 064

REACTIONS (3)
  - FOETAL EXPOSURE DURING PREGNANCY [None]
  - CONVULSION [None]
  - ATRIAL SEPTAL DEFECT [None]
